FAERS Safety Report 25268052 (Version 1)
Quarter: 2025Q2

REPORT INFORMATION
  Report Type: Report from Study
  Country: CA (occurrence: CA)
  Receive Date: 20250505
  Receipt Date: 20250505
  Transmission Date: 20250717
  Serious: Yes (Hospitalization, Other)
  Sender: CSL BEHRING
  Company Number: CA-Vifor (International) Inc.-VIT-2023-01321

PATIENT
  Age: 65 Year
  Sex: Male

DRUGS (5)
  1. VELTASSA [Suspect]
     Active Substance: PATIROMER
     Indication: Blood potassium abnormal
     Dosage: 16.8 GRAM/SACHET
     Route: 048
     Dates: start: 20220413
  2. VELTASSA [Suspect]
     Active Substance: PATIROMER
     Dosage: ONCE DAILY
     Route: 048
     Dates: start: 20230116
  3. VELTASSA [Suspect]
     Active Substance: PATIROMER
     Dosage: EVERY OTHER DAY
     Route: 048
     Dates: start: 20230216
  4. VELTASSA [Suspect]
     Active Substance: PATIROMER
     Route: 048
  5. VELTASSA [Suspect]
     Active Substance: PATIROMER
     Dosage: ONCE DAILY
     Route: 048

REACTIONS (7)
  - Brain operation [Recovering/Resolving]
  - Blood potassium decreased [Recovered/Resolved]
  - Inappropriate schedule of product administration [Unknown]
  - Therapeutic response unexpected [Unknown]
  - Subdural haematoma [Unknown]
  - Hospitalisation [Unknown]
  - Product dispensing error [Unknown]

NARRATIVE: CASE EVENT DATE: 20230201
